FAERS Safety Report 25711930 (Version 1)
Quarter: 2025Q3

REPORT INFORMATION
  Report Type: Spontaneous
  Country: US (occurrence: US)
  Receive Date: 20250821
  Receipt Date: 20250821
  Transmission Date: 20251020
  Serious: Yes (Death, Other)
  Sender: AMGEN
  Company Number: US-AMGEN-USASP2025162069

PATIENT

DRUGS (3)
  1. BEVACIZUMAB [Suspect]
     Active Substance: BEVACIZUMAB
     Indication: Craniopharyngioma
     Route: 065
  2. BEVACIZUMAB [Suspect]
     Active Substance: BEVACIZUMAB
     Indication: Radiation necrosis
  3. BEVACIZUMAB [Suspect]
     Active Substance: BEVACIZUMAB
     Indication: Cyst

REACTIONS (24)
  - Myocarditis [Fatal]
  - Disease recurrence [Unknown]
  - Cerebrospinal fluid leakage [Unknown]
  - Thalamic infarction [Unknown]
  - IIIrd nerve paralysis [Unknown]
  - Diabetes insipidus [Unknown]
  - Adrenal insufficiency [Unknown]
  - Growth hormone deficiency [Unknown]
  - Hypothyroidism [Unknown]
  - Glucocorticoid deficiency [Unknown]
  - Cerebral infarction [Unknown]
  - Cardiopulmonary failure [Unknown]
  - Brain death [Unknown]
  - Hypogonadism [Unknown]
  - Disease progression [Unknown]
  - Obesity [Unknown]
  - Cognitive disorder [Unknown]
  - Visual field defect [Unknown]
  - Nasal obstruction [Unknown]
  - Post procedural complication [Unknown]
  - Asthenia [Unknown]
  - Off label use [Unknown]
  - Muscular weakness [Unknown]
  - Cerebral disorder [Unknown]
